FAERS Safety Report 9539198 (Version 1)
Quarter: 2013Q3

REPORT INFORMATION
  Report Type: Spontaneous
  Country: US (occurrence: US)
  Receive Date: 20130920
  Receipt Date: 20130920
  Transmission Date: 20140515
  Serious: Yes (Other)
  Sender: FDA-Public Use
  Company Number: US-ROXANE LABORATORIES, INC.-2013-RO-01539RO

PATIENT
  Age: 68 Year
  Sex: Female

DRUGS (2)
  1. PREDNISONE [Suspect]
     Indication: GOODPASTURE^S SYNDROME
     Route: 048
  2. CYCLOPHOSPHAMIDE TABLETS USP [Suspect]
     Indication: GOODPASTURE^S SYNDROME
     Route: 048

REACTIONS (3)
  - Thrombotic thrombocytopenic purpura [Recovered/Resolved]
  - Leukopenia [Unknown]
  - Genital herpes [Recovered/Resolved]
